FAERS Safety Report 6038411-3 (Version None)
Quarter: 2009Q1

REPORT INFORMATION
  Report Type: 
  Country: None (occurrence: None)
  Receive Date: 20090115
  Receipt Date: 20081222
  Transmission Date: 20090719
  Serious: No
  Sender: FDA-Public Use
  Company Number: US-BAYER-200910040BCC

PATIENT
  Age: 43 Year
  Sex: Male

DRUGS (1)
  1. ALEVE [Suspect]
     Indication: DRUG USE FOR UNKNOWN INDICATION
     Dosage: AS USED: 220-440 MG  UNIT DOSE: 220 MG
     Dates: start: 20081220

REACTIONS (1)
  - NO ADVERSE EVENT [None]
